FAERS Safety Report 10558577 (Version 1)
Quarter: 2014Q4

REPORT INFORMATION
  Report Type: Spontaneous
  Country: US (occurrence: US)
  Receive Date: 20141031
  Receipt Date: 20141031
  Transmission Date: 20150529
  Serious: Yes (Hospitalization, Other)
  Sender: FDA-Public Use
  Company Number: US-ABBVIE-14P-163-1301569-00

PATIENT
  Age: 62 Year
  Sex: Male

DRUGS (1)
  1. ANDROGEL [Suspect]
     Active Substance: TESTOSTERONE
     Indication: BLOOD TESTOSTERONE DECREASED
     Route: 062
     Dates: start: 20090714, end: 201312

REACTIONS (16)
  - Chest pain [Unknown]
  - Chest pain [Unknown]
  - Anhedonia [Unknown]
  - Fear [Unknown]
  - Injury [Unknown]
  - Pain [Unknown]
  - Physical disability [Unknown]
  - Pulmonary embolism [Unknown]
  - Pulmonary embolism [Unknown]
  - Ventricular fibrillation [Unknown]
  - Reperfusion arrhythmia [Unknown]
  - Myocardial infarction [Unknown]
  - Left ventricular dysfunction [Unknown]
  - Social problem [Unknown]
  - Economic problem [Unknown]
  - Anxiety [Unknown]

NARRATIVE: CASE EVENT DATE: 20100104
